FAERS Safety Report 23248123 (Version 4)
Quarter: 2024Q1

REPORT INFORMATION
  Report Type: Report from Study
  Country: NL (occurrence: NL)
  Receive Date: 20231130
  Receipt Date: 20240123
  Transmission Date: 20240410
  Serious: Yes (Life-Threatening, Other)
  Sender: FDA-Public Use
  Company Number: NL-ABBVIE-5277245

PATIENT
  Sex: Female

DRUGS (9)
  1. CARBIDOPA\LEVODOPA [Suspect]
     Active Substance: CARBIDOPA\LEVODOPA
     Indication: Parkinson^s disease
     Dosage: MD: 11.5 ML, CD: 3.4ML/H, ED: 2.0ML?REMAINS AT 16 HOURS
     Route: 050
     Dates: start: 20230102, end: 20230109
  2. CARBIDOPA\LEVODOPA [Suspect]
     Active Substance: CARBIDOPA\LEVODOPA
     Route: 050
  3. CARBIDOPA\LEVODOPA [Suspect]
     Active Substance: CARBIDOPA\LEVODOPA
     Dosage: MD: 11.5 ML, CD: 3.4ML/H, ED: 2.0ML?REMAINS AT 16 HOURS
     Route: 050
     Dates: start: 20230109, end: 20230112
  4. CARBIDOPA\LEVODOPA [Suspect]
     Active Substance: CARBIDOPA\LEVODOPA
     Dosage: MD: 11.5 ML, CD: 3.4ML/H, ED: 2.0ML?REMAINS AT 16 HOURS
     Route: 050
     Dates: start: 20230601, end: 20231106
  5. CARBIDOPA\LEVODOPA [Suspect]
     Active Substance: CARBIDOPA\LEVODOPA
     Dosage: MD: 11.5 ML, CD: 3.5ML/H, ED: 2.0ML?REMAINS AT 16 HOURS
     Route: 050
     Dates: start: 20231106, end: 20240103
  6. CARBIDOPA\LEVODOPA [Suspect]
     Active Substance: CARBIDOPA\LEVODOPA
     Dosage: MD: 11.5 ML, CD: 3.4ML/H, ED: 2.0ML?REMAINS AT 16 HOURS
     Route: 050
     Dates: start: 20230112, end: 20230601
  7. CARBIDOPA\LEVODOPA [Suspect]
     Active Substance: CARBIDOPA\LEVODOPA
     Dosage: MD: 11.5ML, CD: 3.5ML/H, ED: 2.00ML?REMAINS AT 16 HOURS
     Route: 050
     Dates: start: 20240103
  8. CARBIDOPA\LEVODOPA [Suspect]
     Active Substance: CARBIDOPA\LEVODOPA
     Dosage: MD: 11.5 ML, CD: 3.4ML/H, ED: 2.0ML?PERCUTANEOUS J-TUBE?REMAINS AT 16 HOURS
     Route: 050
     Dates: start: 20210906
  9. POLYETHYLENE GLYCOLS [Concomitant]
     Active Substance: POLYETHYLENE GLYCOLS
     Indication: Frequent bowel movements

REACTIONS (35)
  - Eating disorder [Not Recovered/Not Resolved]
  - Vomiting [Not Recovered/Not Resolved]
  - Device kink [Not Recovered/Not Resolved]
  - Freezing phenomenon [Not Recovered/Not Resolved]
  - Stoma site irritation [Not Recovered/Not Resolved]
  - Logorrhoea [Not Recovered/Not Resolved]
  - Muscle rigidity [Recovering/Resolving]
  - Tension [Not Recovered/Not Resolved]
  - Fibroma [Recovering/Resolving]
  - Nausea [Not Recovered/Not Resolved]
  - Depressed mood [Not Recovered/Not Resolved]
  - Dyskinesia [Not Recovered/Not Resolved]
  - Walking aid user [Not Recovered/Not Resolved]
  - Fatigue [Not Recovered/Not Resolved]
  - Personality disorder [Not Recovered/Not Resolved]
  - Device dislocation [Not Recovered/Not Resolved]
  - Somnolence [Not Recovered/Not Resolved]
  - Intentional product misuse [Not Recovered/Not Resolved]
  - Unevaluable event [Not Recovered/Not Resolved]
  - Gait disturbance [Not Recovered/Not Resolved]
  - Middle insomnia [Not Recovered/Not Resolved]
  - Daydreaming [Not Recovered/Not Resolved]
  - Suicidal ideation [Not Recovered/Not Resolved]
  - Product dose omission in error [Not Recovered/Not Resolved]
  - Mobility decreased [Not Recovered/Not Resolved]
  - Decreased appetite [Not Recovered/Not Resolved]
  - On and off phenomenon [Recovering/Resolving]
  - Depressed level of consciousness [Not Recovered/Not Resolved]
  - General physical health deterioration [Not Recovered/Not Resolved]
  - Device kink [Recovered/Resolved]
  - Apathy [Not Recovered/Not Resolved]
  - Anxiety [Not Recovered/Not Resolved]
  - Parkinson^s disease [Not Recovered/Not Resolved]
  - Medication error [Recovered/Resolved]
  - Patient-device incompatibility [Not Recovered/Not Resolved]

NARRATIVE: CASE EVENT DATE: 20230101
